FAERS Safety Report 10141584 (Version 4)
Quarter: 2014Q3

REPORT INFORMATION
  Report Type: Spontaneous
  Country: JP (occurrence: JP)
  Receive Date: 20140429
  Receipt Date: 20140708
  Transmission Date: 20150326
  Serious: Yes (Hospitalization)
  Sender: FDA-Public Use
  Company Number: JP-GLAXOSMITHKLINE-B0989141A

PATIENT
  Age: 13 Year
  Sex: Female
  Weight: 51 kg

DRUGS (2)
  1. FLUNASE 50 MCG 28 METERED SPRAYS [Suspect]
     Active Substance: FLUTICASONE PROPIONATE
     Indication: SEASONAL ALLERGY
     Route: 045
  2. TALION [Concomitant]
     Active Substance: BEPOTASTINE
     Dosage: 5MG TWICE PER DAY
     Route: 048

REACTIONS (5)
  - Loss of consciousness [Unknown]
  - Convulsion [Unknown]
  - Hypoparathyroidism [Unknown]
  - Electrocardiogram QT prolonged [Recovering/Resolving]
  - Hypocalcaemia [Recovering/Resolving]

NARRATIVE: CASE EVENT DATE: 20140421
